FAERS Safety Report 21189874 (Version 1)
Quarter: 2022Q3

REPORT INFORMATION
  Report Type: Spontaneous
  Country: US (occurrence: None)
  Receive Date: 20220808
  Receipt Date: 20220808
  Transmission Date: 20221027
  Serious: Yes (Other)
  Sender: FDA-Public Use
  Company Number: None

PATIENT
  Age: 10 Year
  Sex: Male

DRUGS (1)
  1. ENDARI [Suspect]
     Active Substance: GLUTAMINE
     Indication: Sickle cell disease
     Dosage: 20 GRAM DAILY ORAL
     Route: 048
     Dates: start: 20220616

REACTIONS (1)
  - Constipation [None]

NARRATIVE: CASE EVENT DATE: 20220808
